FAERS Safety Report 4715287-5 (Version None)
Quarter: 2005Q3

REPORT INFORMATION
  Report Type: 
  Country: None (occurrence: None)
  Receive Date: 20050715
  Receipt Date: 20050701
  Transmission Date: 20060218
  Serious: Yes (Other)
  Sender: FDA-Public Use
  Company Number: 200511944JP

PATIENT
  Age: 54 Year
  Sex: Female

DRUGS (8)
  1. TAXOTERE [Suspect]
     Indication: BREAST CANCER
     Route: 041
     Dates: start: 20050518
  2. CLOFEKTON [Suspect]
  3. BENZALIN [Concomitant]
     Dosage: DOSE: 5 TABLETS
     Route: 048
  4. GLYCYRON [Concomitant]
     Dosage: DOSE: 6 TABLETS
     Route: 048
  5. SULPIRIDE [Concomitant]
     Route: 048
  6. NEUQUINON [Concomitant]
     Route: 048
  7. TREMIN [Concomitant]
     Route: 048
  8. DECADRON [Concomitant]
     Indication: PREMEDICATION

REACTIONS (6)
  - ANAPHYLACTIC SHOCK [None]
  - ARRHYTHMIA [None]
  - AUTONOMIC NERVOUS SYSTEM IMBALANCE [None]
  - BLOOD PRESSURE INCREASED [None]
  - CHEST PAIN [None]
  - INFUSION RELATED REACTION [None]
